FAERS Safety Report 8495091-5 (Version None)
Quarter: 2012Q3

REPORT INFORMATION
  Report Type: 
  Country: None (occurrence: None)
  Receive Date: 20120709
  Receipt Date: 20120705
  Transmission Date: 20120928
  Serious: Yes (Other)
  Sender: FDA-Public Use
  Company Number: PHEH2012US013335

PATIENT
  Sex: Male

DRUGS (5)
  1. COREG [Concomitant]
  2. LOSARTAN POTASSIUM [Concomitant]
  3. ALLOPURINOL [Concomitant]
  4. TASIGNA [Suspect]
     Indication: CHRONIC MYELOID LEUKAEMIA
     Dosage: 300 MG, DAILY
     Route: 048
     Dates: start: 20110308
  5. COLCHICINE [Concomitant]

REACTIONS (3)
  - VARICELLA [None]
  - RED BLOOD CELL COUNT DECREASED [None]
  - WHITE BLOOD CELL COUNT DECREASED [None]
